FAERS Safety Report 10610956 (Version 1)
Quarter: 2014Q4

REPORT INFORMATION
  Report Type: Spontaneous
  Country: US (occurrence: US)
  Receive Date: 20141126
  Receipt Date: 20141126
  Transmission Date: 20150529
  Serious: No
  Sender: FDA-Public Use
  Company Number: US-MALLINCKRODT-T201403365

PATIENT
  Sex: Female

DRUGS (5)
  1. PROPRANOLOL [Concomitant]
     Active Substance: PROPRANOLOL\PROPRANOLOL HYDROCHLORIDE
     Dosage: UNK
  2. PAROXETINE [Concomitant]
     Active Substance: PAROXETINE\PAROXETINE HYDROCHLORIDE
     Dosage: UNK
  3. LAMOTRIGINE. [Concomitant]
     Active Substance: LAMOTRIGINE
     Dosage: UNK
  4. GABLOFEN [Suspect]
     Active Substance: BACLOFEN
     Indication: MUSCLE SPASTICITY
     Dosage: 454.4 MCG/DAY
     Route: 037
  5. BACLOFEN. [Suspect]
     Active Substance: BACLOFEN
     Indication: MUSCLE SPASTICITY
     Dosage: 513 MCG/DAY
     Route: 037

REACTIONS (13)
  - Hypotonia [Unknown]
  - Gait disturbance [Unknown]
  - Muscle spasms [Unknown]
  - Drug effect decreased [Unknown]
  - Catheter site fibrosis [Unknown]
  - Headache [Unknown]
  - Malaise [Recovering/Resolving]
  - Constipation [Unknown]
  - Sleep apnoea syndrome [Recovering/Resolving]
  - Decreased appetite [Unknown]
  - Vomiting [Unknown]
  - Nausea [Unknown]
  - Urinary retention [Unknown]

NARRATIVE: CASE EVENT DATE: 2009
